FAERS Safety Report 6037432-4 (Version None)
Quarter: 2009Q1

REPORT INFORMATION
  Report Type: 
  Country: None (occurrence: None)
  Receive Date: 20090114
  Receipt Date: 20090105
  Transmission Date: 20090719
  Serious: Yes (Hospitalization)
  Sender: FDA-Public Use
  Company Number: FR-BRISTOL-MYERS SQUIBB COMPANY-14466650

PATIENT
  Age: 59 Year
  Sex: Male

DRUGS (9)
  1. ERBITUX [Suspect]
     Indication: SQUAMOUS CELL CARCINOMA
     Dosage: 1ST :16SEP2008 2ND :23SEP2008 3RD :30SEP2008 4TH :07OCT2008 5TH :29OCT2008 6TH :06NOV2008
     Route: 042
     Dates: start: 20080916
  2. CORTANCYL [Concomitant]
     Dosage: FORM: TABLET
     Route: 048
  3. KARDEGIC [Concomitant]
     Dosage: POWDER FOR ORAL SOLUTION,
     Route: 048
  4. NEXIUM [Concomitant]
  5. LEXOMIL [Concomitant]
     Dosage: FORM: TABLET
     Route: 048
  6. MORPHINE [Concomitant]
  7. FORLAX [Concomitant]
     Dosage: POWDER FOR ORAL SOLUTION
     Route: 048
  8. KEPPRA [Concomitant]
     Indication: EPILEPSY
  9. LYRICA [Concomitant]
     Indication: EPILEPSY
     Dates: start: 20081001

REACTIONS (3)
  - DYSARTHRIA [None]
  - EPILEPSY [None]
  - HEMIPARESIS [None]
